FAERS Safety Report 7652206-6 (Version None)
Quarter: 2011Q3

REPORT INFORMATION
  Report Type: 
  Country: None (occurrence: None)
  Receive Date: 20110803
  Receipt Date: 20110317
  Transmission Date: 20111222
  Serious: Yes (Other)
  Sender: FDA-Public Use
  Company Number: US-BAYER-2011-024920

PATIENT
  Age: 21 Year
  Sex: Female

DRUGS (1)
  1. YAZ [Suspect]

REACTIONS (1)
  - THROMBOSIS [None]
